FAERS Safety Report 9365467 (Version 1)
Quarter: 2013Q2

REPORT INFORMATION
  Report Type: Spontaneous
  Country: AT (occurrence: AT)
  Receive Date: 20130625
  Receipt Date: 20130625
  Transmission Date: 20140414
  Serious: Yes (Hospitalization)
  Sender: FDA-Public Use
  Company Number: AT-009507513-1306AUT010775

PATIENT
  Sex: Female

DRUGS (2)
  1. PUREGON [Suspect]
  2. MERIONAL [Suspect]

REACTIONS (3)
  - Jugular vein thrombosis [Unknown]
  - Thrombosis [Unknown]
  - Ovarian hyperstimulation syndrome [Unknown]
